FAERS Safety Report 4492416-2 (Version None)
Quarter: 2004Q4

REPORT INFORMATION
  Report Type: 
  Country: None (occurrence: None)
  Receive Date: 20041102
  Receipt Date: 20041102
  Transmission Date: 20050328
  Serious: Yes (Hospitalization)
  Sender: FDA-Public Use
  Company Number: None

PATIENT
  Age: 52 Year
  Sex: Male
  Weight: 98 kg

DRUGS (8)
  1. TAXOTERE [Suspect]
     Indication: NON-SMALL CELL LUNG CANCER
     Dosage: 157 MG IV
     Route: 042
     Dates: start: 20040824
  2. CARBOPLATIN [Suspect]
     Indication: NON-SMALL CELL LUNG CANCER
     Dosage: 790 MG IV
     Route: 042
     Dates: start: 20040824
  3. X-DUR [Concomitant]
  4. THIAMINE [Concomitant]
  5. MORPHINE [Concomitant]
  6. LEXAPRO [Concomitant]
  7. PROTONEX [Concomitant]
  8. ATIVAN [Concomitant]

REACTIONS (3)
  - PNEUMOTHORAX [None]
  - POST PROCEDURAL COMPLICATION [None]
  - SUPRAVENTRICULAR TACHYCARDIA [None]
